FAERS Safety Report 9602387 (Version 1)
Quarter: 2013Q4

REPORT INFORMATION
  Report Type: Spontaneous
  Country: GB (occurrence: None)
  Receive Date: 20131003
  Receipt Date: 20131003
  Transmission Date: 20140711
  Serious: Yes (Other)
  Sender: FDA-Public Use
  Company Number: ABR_01150_2013

PATIENT
  Age: 53 Year
  Sex: 0

DRUGS (1)
  1. GLIADEL [Suspect]
     Indication: ASTROCYTOMA MALIGNANT

REACTIONS (3)
  - Incision site infection [None]
  - Implant site abscess [None]
  - Culture positive [None]
